FAERS Safety Report 6702661-0 (Version None)
Quarter: 2010Q2

REPORT INFORMATION
  Report Type: 
  Country: None (occurrence: None)
  Receive Date: 20100429
  Receipt Date: 20100421
  Transmission Date: 20101027
  Serious: Yes (Hospitalization, Disabling)
  Sender: FDA-Public Use
  Company Number: US-ABBOTT-07P-163-0418841-00

PATIENT
  Sex: Female
  Weight: 68.1 kg

DRUGS (9)
  1. LUPRON DEPOT [Suspect]
     Indication: ENDOMETRIOSIS
     Route: 030
     Dates: start: 20040101, end: 20040211
  2. CELEXA [Concomitant]
     Indication: DEPRESSION
     Route: 048
  3. KLONOPIN [Concomitant]
     Indication: ANXIETY
     Route: 048
  4. CALCIUM WITH VITAMIN D [Concomitant]
     Indication: VITAMIN SUPPLEMENTATION
     Route: 048
  5. VITAMIN B COMPLEX CAP [Concomitant]
     Indication: VITAMIN SUPPLEMENTATION
     Route: 048
  6. VITAMIN C [Concomitant]
     Indication: VITAMIN SUPPLEMENTATION
     Route: 048
  7. OXYCODONE [Concomitant]
     Indication: PAIN
     Route: 048
  8. VALIUM [Concomitant]
     Indication: DRUG USE FOR UNKNOWN INDICATION
  9. ZOLOFT [Concomitant]
     Indication: DRUG USE FOR UNKNOWN INDICATION
     Route: 048

REACTIONS (18)
  - AMNESIA [None]
  - ARRHYTHMIA [None]
  - ARTHRALGIA [None]
  - BEDRIDDEN [None]
  - BONE PAIN [None]
  - CHEST PAIN [None]
  - DEPRESSION [None]
  - GAIT DISTURBANCE [None]
  - HYPERTENSION [None]
  - INFLUENZA [None]
  - MALAISE [None]
  - MYALGIA [None]
  - OEDEMA PERIPHERAL [None]
  - PYREXIA [None]
  - TENSION HEADACHE [None]
  - URINARY RETENTION [None]
  - VENTRICULAR EXTRASYSTOLES [None]
  - WEIGHT INCREASED [None]
